FAERS Safety Report 4622598-0 (Version None)
Quarter: 2005Q1

REPORT INFORMATION
  Report Type: 
  Country: None (occurrence: None)
  Receive Date: 20050330
  Receipt Date: 20050323
  Transmission Date: 20050727
  Serious: Yes (Other)
  Sender: FDA-Public Use
  Company Number: US-JNJFOC-20040807764

PATIENT
  Age: 5 Year
  Sex: Female
  Weight: 17 kg

DRUGS (5)
  1. TOPAMAX [Suspect]
  2. TOPAMAX [Suspect]
     Dosage: DECREASED
  3. DILANTIN [Concomitant]
     Indication: CONVULSION PROPHYLAXIS
  4. TEGRETOL [Concomitant]
     Indication: CONVULSION PROPHYLAXIS
     Dosage: 100 MG/5ML, 1-1/2 TEASPOONS IN MORNING, 1 AT NOON AND 1-1/2 AT NIGHT.
  5. DIASTAT [Concomitant]
     Indication: CONVULSION PROPHYLAXIS
     Dosage: AS NEEDED

REACTIONS (1)
  - TETANY [None]
